FAERS Safety Report 24541384 (Version 5)
Quarter: 2024Q4

REPORT INFORMATION
  Report Type: Report from Study
  Country: NL (occurrence: NL)
  Receive Date: 20241023
  Receipt Date: 20241120
  Transmission Date: 20250115
  Serious: Yes (Other)
  Sender: ABBVIE
  Company Number: NL-ABBVIE-5889816

PATIENT
  Age: 75 Year
  Sex: Male

DRUGS (17)
  1. CARBIDOPA\LEVODOPA [Suspect]
     Active Substance: CARBIDOPA\LEVODOPA
     Indication: Parkinson^s disease
     Dosage: LD:1.20ML; BIR:0.33ML/H; LIR:0.20ML/H; ED:0.20ML; TLD; 6.88 ML, REMAINS AT 24 HOURS
     Route: 058
     Dates: start: 20240813, end: 20240821
  2. CARBIDOPA\LEVODOPA [Suspect]
     Active Substance: CARBIDOPA\LEVODOPA
     Dosage: LD:1.20 ML; BIR:0.42ML/H; HIR:0.42ML/H; LIR:0.28ML/H, ED:30ML
     Route: 058
     Dates: start: 20241112
  3. CARBIDOPA\LEVODOPA [Suspect]
     Active Substance: CARBIDOPA\LEVODOPA
     Dosage: LD:1.20ML; BIR:0.33ML/H; LIR:0.26ML/H; ED:0.20ML, REMAINS AT 24 HOURS
     Route: 058
     Dates: start: 20240911, end: 20240919
  4. CARBIDOPA\LEVODOPA [Suspect]
     Active Substance: CARBIDOPA\LEVODOPA
     Dosage: LD:1.20ML; BIR:0.36ML/H; LIR:0.26ML/H; ED:0.20ML. REMAINS AT 24 HOURS
     Route: 058
     Dates: start: 20240919, end: 20241031
  5. CARBIDOPA\LEVODOPA [Suspect]
     Active Substance: CARBIDOPA\LEVODOPA
     Dosage: LD:1.20ML; BIR:0.33ML/H; HIR:0.33ML/H; LIR:0.23ML/H; ED:0.20ML; REMAINS AT 24 HOURS
     Route: 058
     Dates: start: 20240821, end: 20240829
  6. CARBIDOPA\LEVODOPA [Suspect]
     Active Substance: CARBIDOPA\LEVODOPA
     Dosage: LIR:0.26ML/H; ED:0.25ML; REMAINS AT 24 HOURS
     Route: 058
     Dates: start: 20240829, end: 20240911
  7. CARBIDOPA\LEVODOPA [Suspect]
     Active Substance: CARBIDOPA\LEVODOPA
     Dosage: BIR:0.38ML/H; HIR:0.38ML/H. REMAINS AT 24 HOURS
     Route: 058
     Dates: start: 20241031, end: 20241112
  8. CARBIDOPA\LEVODOPA [Suspect]
     Active Substance: CARBIDOPA\LEVODOPA
     Route: 058
  9. NEUPRO [Concomitant]
     Active Substance: ROTIGOTINE
     Indication: Parkinson^s disease
  10. CARBIDOPA\LEVODOPA [Concomitant]
     Active Substance: CARBIDOPA\LEVODOPA
     Indication: Parkinson^s disease
     Dosage: 2 UNIT
     Route: 048
  11. ELIQUIS [Concomitant]
     Active Substance: APIXABAN
     Indication: Myocardial infarction
     Dosage: 1 UNIT
     Route: 048
  12. BUMETANIDE [Concomitant]
     Active Substance: BUMETANIDE
     Indication: Myocardial infarction
     Dosage: 1 UNIT
     Route: 048
  13. BENSERAZIDE HYDROCHLORIDE\LEVODOPA [Concomitant]
     Active Substance: BENSERAZIDE HYDROCHLORIDE\LEVODOPA
     Indication: Parkinson^s disease
     Dosage: 2 UNIT
     Route: 048
  14. ATORVASTATIN [Concomitant]
     Active Substance: ATORVASTATIN
     Indication: Myocardial infarction
     Dosage: 1 UNIT
     Route: 048
  15. Betmiga Mva [Concomitant]
     Indication: Urinary incontinence
     Dosage: 1 UNIT
     Route: 048
  16. MIRABEGRON [Concomitant]
     Active Substance: MIRABEGRON
     Indication: Urinary incontinence
     Dosage: 1 UNIT, BETMIGA MVA
     Route: 048
  17. CITALOPRAM [Concomitant]
     Active Substance: CITALOPRAM
     Indication: Antidepressant therapy

REACTIONS (36)
  - Urinary tract infection [Recovering/Resolving]
  - Limb discomfort [Recovered/Resolved]
  - Abnormal dreams [Not Recovered/Not Resolved]
  - On and off phenomenon [Not Recovered/Not Resolved]
  - Muscle rigidity [Recovering/Resolving]
  - Bradykinesia [Not Recovered/Not Resolved]
  - Dyskinesia [Recovered/Resolved with Sequelae]
  - Mobility decreased [Recovering/Resolving]
  - Speech disorder [Not Recovered/Not Resolved]
  - Dyskinesia [Recovering/Resolving]
  - Drug ineffective [Not Recovered/Not Resolved]
  - Catheter site pain [Not Recovered/Not Resolved]
  - Loss of personal independence in daily activities [Not Recovered/Not Resolved]
  - Restlessness [Not Recovered/Not Resolved]
  - Therapeutic product effect incomplete [Not Recovered/Not Resolved]
  - Parkinson^s disease [Not Recovered/Not Resolved]
  - Dyskinesia [Not Recovered/Not Resolved]
  - Cystitis [Not Recovered/Not Resolved]
  - Infusion site induration [Not Recovered/Not Resolved]
  - Infusion site papule [Not Recovered/Not Resolved]
  - General physical health deterioration [Not Recovered/Not Resolved]
  - Infusion site erythema [Not Recovered/Not Resolved]
  - Device loosening [Unknown]
  - Cognitive disorder [Not Recovered/Not Resolved]
  - Depressed mood [Not Recovered/Not Resolved]
  - Hallucination [Not Recovered/Not Resolved]
  - Delusion [Not Recovered/Not Resolved]
  - Catheter site discharge [Unknown]
  - Infusion site haematoma [Not Recovered/Not Resolved]
  - Sleep disorder [Recovering/Resolving]
  - Unevaluable event [Not Recovered/Not Resolved]
  - Affective disorder [Not Recovered/Not Resolved]
  - Fatigue [Not Recovered/Not Resolved]
  - Bradykinesia [Not Recovered/Not Resolved]
  - Fine motor skill dysfunction [Not Recovered/Not Resolved]
  - Flatulence [Not Recovered/Not Resolved]

NARRATIVE: CASE EVENT DATE: 20240101
